FAERS Safety Report 6242138-2 (Version None)
Quarter: 2009Q2

REPORT INFORMATION
  Report Type: 
  Country: None (occurrence: None)
  Receive Date: 20090622
  Receipt Date: 20090622
  Transmission Date: 20091009
  Serious: Yes (Other)
  Sender: FDA-Public Use
  Company Number: None

PATIENT
  Sex: Female
  Weight: 80 kg

DRUGS (1)
  1. LEVETIRACETAM [Suspect]
     Indication: EPILEPSY
     Dosage: 500 MG TABS 2 BID PO
     Route: 048
     Dates: start: 20090601

REACTIONS (5)
  - ANXIETY [None]
  - CONVULSION [None]
  - MUSCULOSKELETAL DISORDER [None]
  - STRESS [None]
  - TONGUE BITING [None]
